FAERS Safety Report 21020510 (Version 1)
Quarter: 2022Q2

REPORT INFORMATION
  Report Type: Spontaneous
  Country: CH (occurrence: CH)
  Receive Date: 20220629
  Receipt Date: 20220629
  Transmission Date: 20220721
  Serious: Yes (Other)
  Sender: FDA-Public Use
  Company Number: CH-STRIDES ARCOLAB LIMITED-2022SP007805

PATIENT

DRUGS (1)
  1. METHOTREXATE [Suspect]
     Active Substance: METHOTREXATE
     Indication: Product used for unknown indication
     Dosage: 10 MILLIGRAM PER DAY
     Route: 065

REACTIONS (5)
  - Drug-induced liver injury [Unknown]
  - Medication error [Unknown]
  - Pancytopenia [Unknown]
  - Toxicity to various agents [Unknown]
  - Gastrointestinal inflammation [Unknown]
